FAERS Safety Report 13079207 (Version 1)
Quarter: 2017Q1

REPORT INFORMATION
  Report Type: Report from Study
  Country: None (occurrence: AR)
  Receive Date: 20170103
  Receipt Date: 20170103
  Transmission Date: 20170428
  Serious: Yes (Other)
  Sender: FDA-Public Use
  Company Number: AR-ABBVIE-17K-007-1827363-00

PATIENT
  Sex: Female

DRUGS (1)
  1. HUMIRA [Suspect]
     Active Substance: ADALIMUMAB
     Indication: RHEUMATOID ARTHRITIS
     Route: 058
     Dates: start: 20160821, end: 2016

REACTIONS (3)
  - Post procedural complication [Unknown]
  - Femoral hernia [Recovering/Resolving]
  - Intestinal obstruction [Unknown]

NARRATIVE: CASE EVENT DATE: 2016
